FAERS Safety Report 12249110 (Version 1)
Quarter: 2016Q2

REPORT INFORMATION
  Report Type: Report from Study
  Country: US (occurrence: US)
  Receive Date: 20160408
  Receipt Date: 20160408
  Transmission Date: 20160815
  Serious: Yes (Hospitalization, Other)
  Sender: FDA-Public Use
  Company Number: US-ROCHE-1737795

PATIENT
  Age: 60 Year
  Sex: Female
  Weight: 65.83 kg

DRUGS (5)
  1. SYNTHROID [Concomitant]
     Active Substance: LEVOTHYROXINE SODIUM
     Indication: HYPOTHYROIDISM
     Dosage: TAKING FOR 20 YEARS
     Route: 048
  2. HERCEPTIN [Suspect]
     Active Substance: TRASTUZUMAB
     Indication: BREAST CANCER
     Route: 042
     Dates: start: 2002
  3. KADCYLA [Suspect]
     Active Substance: ADO-TRASTUZUMAB EMTANSINE
     Indication: BREAST CANCER METASTATIC
     Route: 042
     Dates: start: 201504
  4. XGEVA [Concomitant]
     Active Substance: DENOSUMAB
     Dosage: TAKING INJECTIONS FOR A YEAR
     Route: 065
  5. ZOMETA [Concomitant]
     Active Substance: ZOLEDRONIC ACID
     Dosage: TOOK BEFORE SHE STARTED XGEVA
     Route: 065

REACTIONS (11)
  - Ejection fraction decreased [Not Recovered/Not Resolved]
  - Oropharyngeal pain [Recovered/Resolved]
  - Arthralgia [Not Recovered/Not Resolved]
  - Influenza like illness [Not Recovered/Not Resolved]
  - Rib fracture [Unknown]
  - Hepatic enzyme increased [Recovered/Resolved]
  - Femur fracture [Recovering/Resolving]
  - Ejection fraction decreased [Unknown]
  - Chest pain [Recovered/Resolved]
  - Pain [Not Recovered/Not Resolved]
  - Troponin increased [Unknown]

NARRATIVE: CASE EVENT DATE: 201504
